FAERS Safety Report 9128680 (Version 1)
Quarter: 2013Q1

REPORT INFORMATION
  Report Type: Spontaneous
  Country: US (occurrence: US)
  Receive Date: 20130228
  Receipt Date: 20130228
  Transmission Date: 20140127
  Serious: Yes (Hospitalization)
  Sender: FDA-Public Use
  Company Number: PHEH2013US004682

PATIENT
  Sex: Male

DRUGS (4)
  1. MYFORTIC [Suspect]
  2. PREDNISONE [Concomitant]
  3. CYCLOSPORINE [Concomitant]
  4. URSODIOL [Concomitant]

REACTIONS (3)
  - Renal failure acute [Unknown]
  - Mental disorder [Unknown]
  - Tremor [Unknown]
